FAERS Safety Report 7216248-7 (Version None)
Quarter: 2011Q1

REPORT INFORMATION
  Report Type: 
  Country: None (occurrence: None)
  Receive Date: 20110107
  Receipt Date: 20110104
  Transmission Date: 20110831
  Serious: Yes (Life-Threatening, Hospitalization)
  Sender: FDA-Public Use
  Company Number: CH-PFIZER INC-2011001374

PATIENT
  Age: 48 Year
  Sex: Male
  Weight: 70 kg

DRUGS (9)
  1. DIFLUCAN [Suspect]
     Indication: OESOPHAGEAL CANDIDIASIS
     Dosage: UNK
     Dates: start: 20101101, end: 20101101
  2. PIPERACILLIN AND TAZOBACTAM [Suspect]
     Dosage: 4.5 G, 3X/DAY
     Dates: start: 20101215, end: 20101216
  3. LEVOFLOXACIN [Suspect]
     Indication: STAPHYLOCOCCAL BACTERAEMIA
     Dosage: 500 MG, 2X/DAY
     Route: 048
     Dates: start: 20101114, end: 20101206
  4. VALTREX [Suspect]
     Indication: HERPES VIRUS INFECTION
     Dosage: UNK
     Dates: start: 20101031, end: 20101104
  5. AMOXICILLIN TRIHYDRATE [Suspect]
     Indication: STAPHYLOCOCCAL BACTERAEMIA
     Dosage: 750 MG, 3X/DAY
     Route: 048
     Dates: start: 20101206, end: 20101214
  6. PIPERACILLIN AND TAZOBACTAM [Suspect]
     Indication: STAPHYLOCOCCAL BACTERAEMIA
     Dosage: 4.5 G, 3X/DAY
     Route: 042
     Dates: start: 20101031, end: 20101110
  7. PENICILLIN [Suspect]
     Indication: STAPHYLOCOCCAL BACTERAEMIA
     Dosage: UNK
     Route: 041
     Dates: start: 20101110, end: 20101114
  8. RIMACTANE [Suspect]
     Indication: STAPHYLOCOCCAL BACTERAEMIA
     Dosage: 450 MG, 2X/DAY
     Route: 048
     Dates: start: 20101114, end: 20101206
  9. GRANOCYTE [Concomitant]
     Indication: AGRANULOCYTOSIS
     Dosage: 263 UG, 1X/DAY
     Route: 058
     Dates: start: 20101215, end: 20101217

REACTIONS (5)
  - AGRANULOCYTOSIS [None]
  - ANAEMIA [None]
  - LEUKOPENIA [None]
  - PANCYTOPENIA [None]
  - THROMBOCYTOPENIA [None]
